FAERS Safety Report 7298156-9 (Version None)
Quarter: 2011Q1

REPORT INFORMATION
  Report Type: 
  Country: None (occurrence: None)
  Receive Date: 20110217
  Receipt Date: 20110211
  Transmission Date: 20110831
  Serious: Yes (Hospitalization)
  Sender: FDA-Public Use
  Company Number: US-MYLANLABS-2011S1002481

PATIENT
  Age: 77 Year
  Sex: Female

DRUGS (4)
  1. AGGRENOX [Concomitant]
     Route: 048
  2. AMOXICILLIN [Suspect]
  3. LISINOPRIL [Concomitant]
     Route: 048
  4. MIRTAZAPINE [Suspect]
     Route: 048
     Dates: start: 20110202, end: 20110204

REACTIONS (1)
  - HYPERSENSITIVITY [None]
